FAERS Safety Report 15676519 (Version 2)
Quarter: 2018Q4

REPORT INFORMATION
  Report Type: Spontaneous
  Country: JP (occurrence: JP)
  Receive Date: 20181130
  Receipt Date: 20181220
  Transmission Date: 20190205
  Serious: Yes (Hospitalization)
  Sender: FDA-Public Use
  Company Number: JP-OTSUKA-2018_037441AA

PATIENT
  Age: 76 Year
  Sex: Female

DRUGS (8)
  1. REXULTI [Suspect]
     Active Substance: BREXPIPRAZOLE
     Indication: DEPRESSIVE DELUSION
     Dosage: 2 MG, DAILY DOSE
     Route: 048
     Dates: start: 20180929, end: 20181026
  2. REFLEX [Suspect]
     Active Substance: MIRTAZAPINE
     Dosage: 45 MG, DAILY DOSE
     Route: 048
     Dates: start: 20181013, end: 20181026
  3. LIPIDIL [Concomitant]
     Active Substance: FENOFIBRATE
     Indication: PRODUCT USED FOR UNKNOWN INDICATION
     Dosage: 160 MG, DAILY DOSE
     Route: 048
     Dates: start: 20180916, end: 20181026
  4. REFLEX [Suspect]
     Active Substance: MIRTAZAPINE
     Indication: PRODUCT USED FOR UNKNOWN INDICATION
     Dosage: 30 MG, DAILY DOSE
     Route: 048
     Dates: start: 20180929, end: 20181012
  5. INDERAL [Concomitant]
     Active Substance: PROPRANOLOL HYDROCHLORIDE
     Indication: PRODUCT USED FOR UNKNOWN INDICATION
     Dosage: 30 MG, DAILY DOSE
     Route: 048
     Dates: start: 20180922, end: 20181026
  6. GLACTIV [Concomitant]
     Active Substance: SITAGLIPTIN
     Indication: PRODUCT USED FOR UNKNOWN INDICATION
     Dosage: 50 MG, DAILY DOSE
     Route: 048
     Dates: start: 20180927, end: 20181026
  7. REXULTI [Suspect]
     Active Substance: BREXPIPRAZOLE
     Dosage: 1 MG, DAILY DOSE
     Route: 048
     Dates: start: 20180919, end: 20180928
  8. REFLEX [Suspect]
     Active Substance: MIRTAZAPINE
     Dosage: 15 MG, DAILY DOSE
     Route: 048
     Dates: start: 20180916, end: 20180928

REACTIONS (3)
  - Neutropenia [Recovered/Resolved]
  - Gastroenteritis [Unknown]
  - Product use in unapproved indication [Unknown]

NARRATIVE: CASE EVENT DATE: 20180919
